FAERS Safety Report 11379567 (Version 1)
Quarter: 2015Q3

REPORT INFORMATION
  Report Type: Report from Study
  Country: US (occurrence: US)
  Receive Date: 20150814
  Receipt Date: 20150814
  Transmission Date: 20151125
  Serious: No
  Sender: FDA-Public Use
  Company Number: US-AMGEN-USASP2015074827

PATIENT
  Age: 18 Year
  Sex: Male

DRUGS (2)
  1. ENBREL [Suspect]
     Active Substance: ETANERCEPT
     Indication: ANKYLOSING SPONDYLITIS
  2. ENBREL [Suspect]
     Active Substance: ETANERCEPT
     Indication: RHEUMATOID ARTHRITIS
     Dosage: 50 MG, QWK
     Route: 065
     Dates: start: 201503, end: 2015

REACTIONS (8)
  - Skin ulcer [Unknown]
  - Injection site reaction [Unknown]
  - Impaired healing [Unknown]
  - Injection site swelling [Unknown]
  - Skin disorder [Unknown]
  - Sinusitis [Recovered/Resolved]
  - Injection site erythema [Unknown]
  - Fatigue [Unknown]

NARRATIVE: CASE EVENT DATE: 2015
